FAERS Safety Report 24302632 (Version 1)
Quarter: 2024Q3

REPORT INFORMATION
  Report Type: Spontaneous
  Country: FR (occurrence: FR)
  Receive Date: 20240910
  Receipt Date: 20240910
  Transmission Date: 20241016
  Serious: Yes (Hospitalization)
  Sender: PFIZER
  Company Number: FR-ROCHE-10000016498

PATIENT
  Age: 49 Year
  Sex: Female
  Weight: 86 kg

DRUGS (20)
  1. BEVACIZUMAB [Suspect]
     Active Substance: BEVACIZUMAB
     Indication: Ovarian epithelial cancer
     Dosage: 1175 MG, EVERY 3 WEEKS
     Route: 042
     Dates: start: 20240229, end: 20240229
  2. BEVACIZUMAB [Suspect]
     Active Substance: BEVACIZUMAB
     Dosage: 1250 MG, EVERY 3 WEEKS
     Route: 042
     Dates: start: 20240502, end: 20240502
  3. INAVOLISIB [Suspect]
     Active Substance: INAVOLISIB
     Indication: Ovarian epithelial cancer
     Dosage: 9 MG, 1X/DAY
     Route: 048
     Dates: start: 20240229, end: 20240229
  4. AUGMENTIN [Concomitant]
     Active Substance: AMOXICILLIN\CLAVULANATE POTASSIUM
     Indication: Prophylaxis
     Dosage: 1 G, FREQ:3 D;
     Route: 048
     Dates: start: 20240424
  5. OPTIFIBRE CONSTIPATION [Concomitant]
     Indication: Prophylaxis
     Dosage: 250 G, 1X/DAY
     Route: 048
     Dates: start: 20240422
  6. DAPTOMYCIN [Concomitant]
     Active Substance: DAPTOMYCIN
     Dosage: 500 MG, 1X/DAY
     Route: 042
     Dates: start: 20240624, end: 20240813
  7. LOVENOX [Concomitant]
     Active Substance: ENOXAPARIN SODIUM
     Indication: Embolism
     Dosage: 4000 IU, 1X/DAY
     Route: 042
     Dates: start: 20240208
  8. LIDOCAINE [Concomitant]
     Active Substance: LIDOCAINE
     Indication: Pain
     Dosage: 700 MG
     Route: 061
     Dates: start: 20240419, end: 20240725
  9. LOPERAMIDE [Concomitant]
     Active Substance: LOPERAMIDE
     Indication: Prophylaxis
     Dosage: 2 MG, AS NEEDED
     Route: 048
     Dates: start: 20240229
  10. POLYETHYLENE GLYCOLS [Concomitant]
     Active Substance: POLYETHYLENE GLYCOLS
     Indication: Prophylaxis
     Dosage: 1 DF
     Route: 048
     Dates: start: 20240419, end: 20240806
  11. MEROPENEM [Concomitant]
     Active Substance: MEROPENEM
     Dosage: 1 G, FREQ:.25 D;
     Dates: start: 20240624, end: 20240725
  12. METOPIMAZINE [Concomitant]
     Active Substance: METOPIMAZINE
     Indication: Prophylaxis
     Dosage: 7.5 MG, FREQ:.5 D;
     Route: 048
     Dates: start: 20240229
  13. VOGALENE [Concomitant]
     Active Substance: METOPIMAZINE
     Indication: Prophylaxis
     Dosage: 7.5 MG, EVERY 5 DAYS
     Route: 048
     Dates: start: 20240514, end: 20240614
  14. MORPHINE [Concomitant]
     Active Substance: MORPHINE
     Indication: Pain
     Dosage: 235 MG
     Route: 042
     Dates: start: 20240301
  15. MORPHINE [Concomitant]
     Active Substance: MORPHINE
     Dosage: 10 MG
     Dates: start: 20240514
  16. OXAZEPAM [Concomitant]
     Active Substance: OXAZEPAM
     Indication: Anxiety
     Dosage: 10 MG, AS NEEDED
     Route: 048
     Dates: start: 20240207
  17. PANTOPRAZOLE [Concomitant]
     Active Substance: PANTOPRAZOLE
     Dosage: 20 MG, 1X/DAY
     Route: 048
     Dates: start: 20240702
  18. DOLIPRANE [Concomitant]
     Active Substance: ACETAMINOPHEN
     Indication: Pain
     Dosage: 1000 MG, AS NEEDED
     Route: 048
     Dates: start: 20240207
  19. PREGABALIN [Concomitant]
     Active Substance: PREGABALIN
     Dosage: 300 MG, FREQ:.5 D;
     Route: 048
     Dates: start: 20240207
  20. VENLAFAXINE [Concomitant]
     Active Substance: VENLAFAXINE HYDROCHLORIDE
     Indication: Anxiety
     Dosage: 75 MG, EVERY 5 DAYS
     Route: 048
     Dates: start: 20240208

REACTIONS (1)
  - Postoperative wound infection [Recovered/Resolved]

NARRATIVE: CASE EVENT DATE: 20240702
